FAERS Safety Report 11993291 (Version 5)
Quarter: 2016Q4

REPORT INFORMATION
  Report Type: Spontaneous
  Country: JP (occurrence: JP)
  Receive Date: 20160203
  Receipt Date: 20161027
  Transmission Date: 20170206
  Serious: Yes (Death, Hospitalization, Other)
  Sender: FDA-Public Use
  Company Number: PHJP2016JP002132

PATIENT
  Age: 40 Year
  Sex: Male

DRUGS (3)
  1. DOXORUBICIN HYDROCHLORIDE INJECTION [Suspect]
     Active Substance: DOXORUBICIN HYDROCHLORIDE
     Indication: METASTASES TO LIVER
     Dosage: 480 MG/M2 (TOTAL DOSE), UNK
     Route: 065
  2. VOTRIENT [Suspect]
     Active Substance: PAZOPANIB HYDROCHLORIDE
     Indication: METASTASES TO LIVER
     Dosage: 400 MG, QD
     Route: 048
  3. VOTRIENT [Suspect]
     Active Substance: PAZOPANIB HYDROCHLORIDE
     Dosage: 800 MG, UNK
     Route: 048
     Dates: start: 20140826, end: 20140926

REACTIONS (5)
  - Cardiac failure [Fatal]
  - Malignant neoplasm progression [Not Recovered/Not Resolved]
  - Cardiomyopathy [Fatal]
  - Palpitations [Fatal]
  - Orthopnoea [Fatal]

NARRATIVE: CASE EVENT DATE: 20140926
